FAERS Safety Report 10523746 (Version 3)
Quarter: 2014Q4

REPORT INFORMATION
  Report Type: Spontaneous
  Country: JP (occurrence: JP)
  Receive Date: 20141017
  Receipt Date: 20141031
  Transmission Date: 20150528
  Serious: Yes (Other)
  Sender: FDA-Public Use
  Company Number: JP-BRISTOL-MYERS SQUIBB COMPANY-21413513

PATIENT
  Age: 61 Year
  Sex: Female
  Weight: 87 kg

DRUGS (6)
  1. GLYCYRON [Concomitant]
     Active Substance: AMMONIUM GLYCYRRHIZATE\GLYCINE\METHIONINE
     Dosage: NUMBER OF SEPARATE DOSAGES UNKNOWN
     Route: 048
  2. ATELEC [Concomitant]
     Active Substance: CILNIDIPINE
     Route: 048
  3. FORXIGA [Suspect]
     Active Substance: DAPAGLIFLOZIN
     Indication: DIABETES MELLITUS
     Dosage: TABLET
     Route: 048
     Dates: start: 20140621
  4. NEXIUM [Concomitant]
     Active Substance: ESOMEPRAZOLE MAGNESIUM
     Route: 048
  5. EPL [Concomitant]
     Active Substance: LECITHIN
     Dosage: NUMBER OF SEPARATE DOSAGES UNKNOWN
     Route: 048
  6. ALCOHOL. [Suspect]
     Active Substance: ALCOHOL

REACTIONS (2)
  - Glossitis [Recovered/Resolved]
  - Hepatic function abnormal [Recovered/Resolved]

NARRATIVE: CASE EVENT DATE: 20140830
